FAERS Safety Report 22611351 (Version 2)
Quarter: 2023Q2

REPORT INFORMATION
  Report Type: Spontaneous
  Country: CA (occurrence: CA)
  Receive Date: 20230616
  Receipt Date: 20230622
  Transmission Date: 20230722
  Serious: Yes (Other)
  Sender: FDA-Public Use
  Company Number: CA-PFIZER INC-202300166752

PATIENT
  Age: 84 Year
  Sex: Female

DRUGS (3)
  1. ABRILADA [Suspect]
     Active Substance: ADALIMUMAB-AFZB
     Indication: Rheumatoid arthritis
     Dosage: 40 MG, EVERY 2 WEEKS
     Route: 058
     Dates: start: 20230518
  2. ABRILADA [Suspect]
     Active Substance: ADALIMUMAB-AFZB
     Dosage: 40 MG, EVERY 2 WEEKS
     Route: 058
     Dates: start: 20230530
  3. NAPROXEN [Concomitant]
     Active Substance: NAPROXEN
     Dosage: UNK

REACTIONS (6)
  - Rheumatoid arthritis [Not Recovered/Not Resolved]
  - Wrist fracture [Recovering/Resolving]
  - Fall [Unknown]
  - Bone contusion [Not Recovered/Not Resolved]
  - Movement disorder [Unknown]
  - Chest pain [Unknown]

NARRATIVE: CASE EVENT DATE: 20230501
